FAERS Safety Report 24678807 (Version 1)
Quarter: 2024Q4

REPORT INFORMATION
  Report Type: Report from Study
  Country: DE (occurrence: DE)
  Receive Date: 20241129
  Receipt Date: 20241129
  Transmission Date: 20250115
  Serious: Yes (Hospitalization)
  Sender: ABBVIE
  Company Number: DE-ABBVIE-6023496

PATIENT
  Sex: Female

DRUGS (1)
  1. FOSCARBIDOPA [Suspect]
     Active Substance: FOSCARBIDOPA
     Indication: Product used for unknown indication
     Dosage: CRN: 0.24 ML/H; CR: 0.26 ML/H, CRH: 0.28 ML/H, ED: UNKNOWN
     Route: 058

REACTIONS (5)
  - Infusion site papule [Unknown]
  - Infusion site pain [Unknown]
  - Freezing phenomenon [Unknown]
  - On and off phenomenon [Unknown]
  - Musculoskeletal stiffness [Unknown]
